FAERS Safety Report 4276610-1 (Version None)
Quarter: 2004Q1

REPORT INFORMATION
  Report Type: 
  Country: None (occurrence: None)
  Receive Date: 20040120
  Receipt Date: 20040112
  Transmission Date: 20041129
  Serious: Yes (Hospitalization)
  Sender: FDA-Public Use
  Company Number: 04-000024

PATIENT
  Age: 50 Year
  Sex: Female
  Weight: 68 kg

DRUGS (6)
  1. FEMRING [Suspect]
     Indication: HORMONE REPLACEMENT THERAPY
     Dosage: SEE IMAGE
     Route: 067
     Dates: start: 20031118, end: 20031221
  2. FEMRING [Suspect]
     Indication: HORMONE REPLACEMENT THERAPY
     Dosage: SEE IMAGE
     Route: 067
     Dates: start: 20031222, end: 20031229
  3. FEMRING [Suspect]
     Indication: HORMONE REPLACEMENT THERAPY
     Dosage: SEE IMAGE
     Route: 067
     Dates: start: 20031230
  4. SYNTHROID (LEVOTHYROXINE SODIUM),.05MG [Concomitant]
  5. BEXTRA [Concomitant]
  6. ASACOL [Concomitant]

REACTIONS (7)
  - BACK PAIN [None]
  - DRUG INEFFECTIVE [None]
  - HEADACHE [None]
  - HOT FLUSH [None]
  - INSOMNIA [None]
  - IRRITABILITY [None]
  - VAGINAL MYCOSIS [None]
